FAERS Safety Report 9726748 (Version 1)
Quarter: 2013Q4

REPORT INFORMATION
  Report Type: Spontaneous
  Country: US (occurrence: None)
  Receive Date: 20131202
  Receipt Date: 20131202
  Transmission Date: 20140711
  Serious: Yes (Hospitalization)
  Sender: FDA-Public Use
  Company Number: None

PATIENT
  Age: 81 Year
  Sex: Male

DRUGS (1)
  1. ZYTIGA [Suspect]
     Dosage: 4 TABS
     Route: 048
     Dates: start: 20130403, end: 20130801

REACTIONS (5)
  - Urinary tract infection [None]
  - Myocardial infarction [None]
  - Thrombosis [None]
  - Pulmonary thrombosis [None]
  - Diabetes mellitus [None]
